FAERS Safety Report 6020595-4 (Version None)
Quarter: 2008Q4

REPORT INFORMATION
  Report Type: 
  Country: None (occurrence: None)
  Receive Date: 20081227
  Receipt Date: 20081219
  Transmission Date: 20090506
  Serious: Yes (Hospitalization)
  Sender: FDA-Public Use
  Company Number: CH-JNJFOC-20081204873

PATIENT
  Age: 53 Year
  Sex: Male

DRUGS (3)
  1. HALDOL [Suspect]
     Indication: MENTAL DISORDER
     Route: 065
  2. DIPIPERON [Suspect]
     Indication: MENTAL DISORDER
     Route: 065
  3. PHENYTOIN [Concomitant]
     Indication: EPILEPSY
     Route: 048

REACTIONS (3)
  - ABNORMAL BEHAVIOUR [None]
  - EPILEPSY [None]
  - NEUROLEPTIC MALIGNANT SYNDROME [None]
